FAERS Safety Report 4410501-8 (Version None)
Quarter: 2004Q3

REPORT INFORMATION
  Report Type: 
  Country: None (occurrence: None)
  Receive Date: 20040726
  Receipt Date: 20040713
  Transmission Date: 20050211
  Serious: Yes (Hospitalization)
  Sender: FDA-Public Use
  Company Number: 2004PK00757

PATIENT
  Age: 49 Year
  Sex: Female
  Weight: 70 kg

DRUGS (3)
  1. NOLVADEX [Suspect]
     Indication: BREAST CANCER
     Dosage: 20 MG DAILY PO
     Route: 048
     Dates: start: 20020613
  2. ZOMETA [Suspect]
     Indication: BREAST CANCER
     Dosage: 4 MG DAILY IV
     Route: 042
     Dates: start: 20020613, end: 20040122
  3. ZOLADEX [Suspect]
     Indication: BREAST CANCER
     Dosage: 3.6 MG Q4WK SQ
     Route: 058
     Dates: start: 20020613, end: 20040312

REACTIONS (3)
  - FALLOPIAN TUBE CYST [None]
  - UTERINE LEIOMYOMA [None]
  - UTERINE POLYP [None]
